FAERS Safety Report 21308213 (Version 1)
Quarter: 2022Q3

REPORT INFORMATION
  Report Type: Spontaneous
  Country: US (occurrence: None)
  Receive Date: 20220907
  Receipt Date: 20220907
  Transmission Date: 20221027
  Serious: Yes (Disabling)
  Sender: FDA-Public Use
  Company Number: None

PATIENT
  Age: 45 Year
  Sex: Female
  Weight: 90 kg

DRUGS (4)
  1. BUPROPION XL [Suspect]
     Active Substance: BUPROPION HYDROCHLORIDE
     Indication: Depression
     Dosage: OTHER QUANTITY : 1 TABLET(S);?
     Route: 048
     Dates: start: 20220901
  2. Buproprion XL 300mg [Concomitant]
  3. Hydroxyzine 50 mg PRN [Concomitant]
  4. VITAMINS [Concomitant]
     Active Substance: VITAMINS

REACTIONS (5)
  - Product substitution issue [None]
  - Therapeutic response changed [None]
  - Depression [None]
  - Withdrawal syndrome [None]
  - Product complaint [None]

NARRATIVE: CASE EVENT DATE: 20220901
